FAERS Safety Report 4701674-8 (Version None)
Quarter: 2005Q2

REPORT INFORMATION
  Report Type: 
  Country: None (occurrence: None)
  Receive Date: 20050628
  Receipt Date: 20040621
  Transmission Date: 20051028
  Serious: Yes (Hospitalization, Other)
  Sender: FDA-Public Use
  Company Number: BG-NOVOPROD-237763

PATIENT
  Age: 2 Day
  Sex: Male
  Weight: 5 kg

DRUGS (13)
  1. ACTRAPID PENFILL HM(GE) 3.0 ML [Suspect]
     Indication: DIABETES MELLITUS INSULIN-DEPENDENT
     Dosage: 114 IU, QD
     Route: 015
     Dates: start: 20031115
  2. INSULATARD HM PENFILL [Concomitant]
     Indication: DIABETES MELLITUS INSULIN-DEPENDENT
     Dosage: 76 IU, QD
     Dates: start: 20031115
  3. NYSTATIN [Concomitant]
     Dosage: 200000 IU, QD, 2 DAYS
     Route: 048
     Dates: start: 20040612, end: 20040613
  4. OXYGEN [Concomitant]
     Dosage: 3 L/MIN.
     Route: 055
     Dates: start: 20040611, end: 20040611
  5. CALCIUM GLUCONATE [Concomitant]
     Dosage: 8 ML, 10%
     Dates: start: 20040609
  6. CALCIUM GLUCONATE [Concomitant]
     Dosage: 10 ML, 10%
     Dates: start: 20040610
  7. CALCIUM GLUCONATE [Concomitant]
     Dosage: 20 ML, 10%
     Dates: start: 20040611
  8. CALCIUM GLUCONATE [Concomitant]
     Dosage: 16 ML, 10%
     Dates: start: 20040612
  9. CALCIUM GLUCONATE [Concomitant]
     Dosage: 10 ML, 10%
     Dates: start: 20040613
  10. AUGMENTIN                               /UNK/ [Concomitant]
     Dosage: 260 MG, UNK
     Route: 042
     Dates: start: 20040610, end: 20040615
  11. AMIKIN [Concomitant]
     Dosage: 70 MG, UNK
     Route: 042
     Dates: start: 20040611, end: 20040615
  12. FRESH FROZEN PLASMA [Concomitant]
     Dosage: 50 ML, UNK
     Route: 042
     Dates: start: 20040609, end: 20040612
  13. AMINOSTERIL [Concomitant]
     Dosage: 20 ML, UNK
     Route: 042
     Dates: start: 20040612, end: 20040612

REACTIONS (4)
  - APGAR SCORE LOW [None]
  - DRUG EXPOSURE DURING PREGNANCY [None]
  - FEEDING PROBLEM IN NEWBORN [None]
  - HYPOGLYCAEMIA NEONATAL [None]
